FAERS Safety Report 8810001 (Version 1)
Quarter: 2012Q4

REPORT INFORMATION
  Report Type: 
  Country: US (occurrence: US)
  Receive Date: 20120926
  Receipt Date: 20120926
  Transmission Date: 20130627
  Serious: No
  Sender: FDA-Public Use
  Company Number: US-B.I. PHARMACEUTICALS,INC./RIDGEFIELD-2012-BP-22718BP

PATIENT
  Age: 57 Year
  Sex: Female

DRUGS (17)
  1. SPIRIVA [Suspect]
     Indication: CHRONIC OBSTRUCTIVE PULMONARY DISEASE
     Dosage: 18 mcg
     Route: 055
     Dates: start: 2010
  2. SPIRIVA [Suspect]
     Route: 048
     Dates: start: 20120913, end: 20120913
  3. FLONASE [Concomitant]
     Indication: HYPERSENSITIVITY
  4. ACYCLOVIR [Concomitant]
  5. HCTZ [Concomitant]
     Indication: HYPERTENSION
  6. LEVOTHYROXINE [Concomitant]
     Indication: HYPOTHYROIDISM
  7. LISINOPRIL [Concomitant]
     Indication: HYPERTENSION
  8. SIMVASTATIN [Concomitant]
     Indication: BLOOD CHOLESTEROL INCREASED
  9. NITROGLYCERIN [Concomitant]
     Indication: ANGINA PECTORIS
  10. GABAPENTIN [Concomitant]
     Indication: NERVOUS SYSTEM DISORDER
  11. ASPIRIN [Concomitant]
     Indication: ANTICOAGULANT THERAPY
  12. VITAMIN D [Concomitant]
  13. METFORMIN [Concomitant]
     Indication: DIABETES MELLITUS
  14. TYLENOL #3 [Concomitant]
     Indication: PAIN
  15. ADVAIR [Concomitant]
     Indication: CHRONIC OBSTRUCTIVE PULMONARY DISEASE
  16. AMITRIPTYLINE [Concomitant]
     Indication: DEPRESSION
  17. NEBULIZER [Concomitant]
     Indication: CHRONIC OBSTRUCTIVE PULMONARY DISEASE

REACTIONS (1)
  - Incorrect route of drug administration [Recovered/Resolved]
